FAERS Safety Report 10356846 (Version 1)
Quarter: 2014Q3

REPORT INFORMATION
  Report Type: Spontaneous
  Country: BR (occurrence: BR)
  Receive Date: 20140801
  Receipt Date: 20140801
  Transmission Date: 20150326
  Serious: Yes (Hospitalization, Other)
  Sender: FDA-Public Use
  Company Number: PHHY2014BR093850

PATIENT
  Age: 88 Year
  Sex: Male

DRUGS (1)
  1. FORASEQ [Suspect]
     Active Substance: BUDESONIDE\FORMOTEROL FUMARATE
     Indication: LUNG DISORDER
     Dosage: UNK UKN, BID
     Route: 055
     Dates: start: 201402

REACTIONS (3)
  - Viral test positive [Recovered/Resolved]
  - Single functional kidney [Unknown]
  - Renal disorder [Recovered/Resolved]
